FAERS Safety Report 9088343 (Version 1)
Quarter: 2013Q1

REPORT INFORMATION
  Report Type: Spontaneous
  Country: US (occurrence: US)
  Receive Date: 20130131
  Receipt Date: 20130131
  Transmission Date: 20140127
  Serious: No
  Sender: FDA-Public Use
  Company Number: US-ABBOTT-12P-163-0986656-00

PATIENT
  Sex: Female
  Weight: 61.74 kg

DRUGS (11)
  1. HUMIRA [Suspect]
     Indication: CROHN^S DISEASE
     Route: 058
     Dates: start: 201206
  2. ENTOCORT [Concomitant]
     Indication: CROHN^S DISEASE
     Dosage: 2 CAPS IN AM
  3. CYMBLATA (NON-ABBOTT) [Concomitant]
     Indication: DEPRESSION
  4. DIAZEPAM [Concomitant]
     Indication: ANXIETY
  5. SYNTHROID [Concomitant]
     Indication: HYPOTHYROIDISM
  6. POTASSIUM CHLORIDE [Concomitant]
     Indication: MINERAL SUPPLEMENTATION
  7. VITAMIN B 12 [Concomitant]
     Indication: VITAMIN SUPPLEMENTATION
  8. MAGNESIUM [Concomitant]
     Indication: VITAMIN SUPPLEMENTATION
  9. IRON [Concomitant]
     Indication: MINERAL SUPPLEMENTATION
  10. MVI [Concomitant]
     Indication: VITAMIN SUPPLEMENTATION
  11. UNKNOWN PAIN MEDICATIONS (NON-ABBOTT) [Concomitant]
     Indication: PRODUCT USED FOR UNKNOWN INDICATION

REACTIONS (4)
  - Psoriasis [Not Recovered/Not Resolved]
  - Injection site pain [Unknown]
  - Wrong technique in drug usage process [Unknown]
  - Incorrect dose administered [Unknown]
